FAERS Safety Report 14603869 (Version 1)
Quarter: 2018Q1

REPORT INFORMATION
  Report Type: Report from Study
  Country: DE (occurrence: DE)
  Receive Date: 20180306
  Receipt Date: 20180306
  Transmission Date: 20180509
  Serious: Yes (Death, Hospitalization, Other)
  Sender: FDA-Public Use
  Company Number: DE-PFIZER INC-2018088132

PATIENT
  Age: 82 Year
  Sex: Male
  Weight: 87 kg

DRUGS (8)
  1. FENTANYL. [Concomitant]
     Active Substance: FENTANYL
     Indication: PAIN
     Dosage: 50 UG, TWICE A WEEK
     Route: 062
     Dates: start: 20160915, end: 20161012
  2. CEFTRIAXONE SODIUM. [Suspect]
     Active Substance: CEFTRIAXONE SODIUM
     Indication: C-REACTIVE PROTEIN INCREASED
     Dosage: UNK
     Dates: start: 20160901, end: 20160901
  3. PANTOPRAZOL [Concomitant]
     Active Substance: PANTOPRAZOLE SODIUM
     Indication: GASTRIC ANTRAL VASCULAR ECTASIA
     Dosage: 40 MG, 1X/DAY
     Route: 048
     Dates: start: 20160801, end: 20160913
  4. PANTOPRAZOL [Concomitant]
     Active Substance: PANTOPRAZOLE SODIUM
     Dosage: 20 MG, 1X/DAY
     Route: 048
     Dates: start: 20160914, end: 20170101
  5. NOVALGIN (METAMIZOLE SODIUM) [Concomitant]
     Active Substance: METAMIZOLE SODIUM
     Indication: PAIN
     Dosage: 1 G, UNK
     Route: 042
  6. BLINDED THERAPY [Suspect]
     Active Substance: INVESTIGATIONAL PRODUCT
     Dosage: 30 MG, WEEKLY
     Route: 058
     Dates: start: 20160314, end: 20160616
  7. TOREM [Concomitant]
     Active Substance: TORSEMIDE
     Indication: CARDIAC FAILURE
     Dosage: 20 MG, 1X/DAY
     Route: 048
     Dates: start: 20160824, end: 20161008
  8. BLINDED THERAPY [Suspect]
     Active Substance: INVESTIGATIONAL PRODUCT
     Indication: TYPE 2 DIABETES MELLITUS
     Dosage: 30 MG, WEEKLY
     Route: 058
     Dates: start: 20150819, end: 20151229

REACTIONS (3)
  - Diarrhoea [Fatal]
  - Multiple organ dysfunction syndrome [Fatal]
  - Dehydration [Fatal]

NARRATIVE: CASE EVENT DATE: 20161001
